FAERS Safety Report 8801214 (Version 3)
Quarter: 2012Q4

REPORT INFORMATION
  Report Type: 
  Country: JP (occurrence: JP)
  Receive Date: 20120921
  Receipt Date: 20121128
  Transmission Date: 20130627
  Serious: Yes (Other)
  Sender: FDA-Public Use
  Company Number: JP-EISAI INC-E3810-05891-SPO-JP

PATIENT
  Age: 80 Year
  Sex: Male
  Weight: 40 kg

DRUGS (3)
  1. PARIET (RABEPRAZOLE) [Suspect]
     Indication: PROPHYLAXIS OF NSAID GASTRIC ULCERATION
     Route: 048
  2. BAYASPIRIN [Concomitant]
     Route: 048
  3. CILOSTAZOL [Concomitant]
     Route: 048

REACTIONS (1)
  - Colitis microscopic [Recovered/Resolved]
